FAERS Safety Report 10483503 (Version 1)
Quarter: 2014Q3

REPORT INFORMATION
  Report Type: Spontaneous
  Country: US (occurrence: None)
  Receive Date: 20140929
  Receipt Date: 20140929
  Transmission Date: 20150326
  Serious: No
  Sender: FDA-Public Use
  Company Number: None

PATIENT
  Age: 45 Year
  Sex: Female

DRUGS (1)
  1. NIVEA A KISS OF PROTECTION SUN PROTECTION LIP CARE [Suspect]
     Active Substance: OCTINOXATE\OCTOCRYLENE\OXYBENZONE\TITANIUM DIOXIDE
     Indication: PROPHYLAXIS AGAINST SOLAR RADIATION
     Dates: start: 20140918, end: 20140924

REACTIONS (3)
  - Chapped lips [None]
  - Lip dry [None]
  - Paraesthesia oral [None]

NARRATIVE: CASE EVENT DATE: 20140918
